FAERS Safety Report 14113225 (Version 1)
Quarter: 2017Q4

REPORT INFORMATION
  Report Type: Spontaneous
  Country: US (occurrence: None)
  Receive Date: 20171021
  Receipt Date: 20171021
  Transmission Date: 20180321
  Serious: Yes (Hospitalization)
  Sender: FDA-Public Use
  Company Number: None

PATIENT
  Age: 52 Year
  Sex: Female
  Weight: 66 kg

DRUGS (1)
  1. CISPLATIN. [Suspect]
     Active Substance: CISPLATIN
     Dates: end: 20161003

REACTIONS (6)
  - Postoperative wound infection [None]
  - Feeding disorder [None]
  - Small intestinal obstruction [None]
  - Wound dehiscence [None]
  - Post procedural infection [None]
  - Pelvic fluid collection [None]

NARRATIVE: CASE EVENT DATE: 20170603
